FAERS Safety Report 25357965 (Version 1)
Quarter: 2025Q2

REPORT INFORMATION
  Report Type: Spontaneous
  Country: US (occurrence: US)
  Receive Date: 20250526
  Receipt Date: 20250526
  Transmission Date: 20250716
  Serious: No
  Sender: DR REDDYS
  Company Number: US-DRL-USA-USA/2025/05/006895

PATIENT
  Sex: Male

DRUGS (1)
  1. DIVALPROEX SODIUM DR [Suspect]
     Active Substance: DIVALPROEX SODIUM
     Indication: Seizure
     Route: 065

REACTIONS (3)
  - Wrong technique in product usage process [Unknown]
  - Product packaging quantity issue [Unknown]
  - Product physical issue [Unknown]
